FAERS Safety Report 6391284-1 (Version None)
Quarter: 2009Q4

REPORT INFORMATION
  Report Type: 
  Country: None (occurrence: None)
  Receive Date: 20091007
  Receipt Date: 20090924
  Transmission Date: 20100525
  Serious: Yes (Hospitalization, Other)
  Sender: FDA-Public Use
  Company Number: PHHY2009JP38855

PATIENT
  Sex: Female
  Weight: 41 kg

DRUGS (5)
  1. DIOVAN [Suspect]
     Indication: HYPERTENSION
     Dosage: 80 MG, QD
     Route: 048
     Dates: start: 20050101, end: 20090912
  2. ATENOLOL [Concomitant]
     Route: 048
  3. NORVASC [Concomitant]
     Dosage: 5 MG, UNK
     Route: 048
     Dates: start: 20050101
  4. MIROBECT [Concomitant]
     Dosage: 25 MG, UNK
     Route: 048
     Dates: start: 20050101, end: 20090915
  5. PREDNISOLONE [Concomitant]
     Dosage: 30 MG DAILY
     Route: 048
     Dates: start: 20090911

REACTIONS (4)
  - CHEST X-RAY ABNORMAL [None]
  - COUGH [None]
  - EOSINOPHIL COUNT INCREASED [None]
  - INTERSTITIAL LUNG DISEASE [None]
